FAERS Safety Report 4997023-0 (Version None)
Quarter: 2006Q2

REPORT INFORMATION
  Report Type: 
  Country: None (occurrence: None)
  Receive Date: 20060505
  Receipt Date: 20060505
  Transmission Date: 20061013
  Serious: No
  Sender: FDA-Public Use
  Company Number: None

PATIENT
  Sex: Male
  Weight: 65.7716 kg

DRUGS (5)
  1. QUETIAPINE FUMARATE [Suspect]
     Indication: SELF INJURIOUS BEHAVIOUR
     Dosage: 300 MG BID PO
     Route: 048
     Dates: start: 20040924
  2. LEVOTHYROXINE SODIUM [Concomitant]
  3. DIVALPROEX SODIUM [Concomitant]
  4. ALENDRONATE SODIUM [Concomitant]
  5. ZOLOIDEM [Concomitant]

REACTIONS (2)
  - CATARACT [None]
  - INJURY [None]
